FAERS Safety Report 9450882 (Version 1)
Quarter: 2013Q3

REPORT INFORMATION
  Report Type: Spontaneous
  Country: US (occurrence: US)
  Receive Date: 20130809
  Receipt Date: 20130809
  Transmission Date: 20140515
  Serious: Yes (Other)
  Sender: FDA-Public Use
  Company Number: CHPA2013US012503

PATIENT
  Age: 68 Year
  Sex: Male

DRUGS (3)
  1. PRIVATE LABEL [Suspect]
     Indication: SMOKING CESSATION THERAPY
     Dosage: 7 MG, QD
     Route: 062
     Dates: start: 201307
  2. PRIVATE LABEL [Suspect]
     Dosage: 14 MG, QD
     Route: 062
     Dates: start: 201306, end: 201307
  3. PRIVATE LABEL [Suspect]
     Dosage: 21 MG, QD
     Route: 062
     Dates: start: 20130516, end: 201306

REACTIONS (6)
  - Poor peripheral circulation [Not Recovered/Not Resolved]
  - Skin discolouration [Unknown]
  - Angiopathy [Not Recovered/Not Resolved]
  - Feeling abnormal [Recovering/Resolving]
  - Nicotine dependence [Not Recovered/Not Resolved]
  - Incorrect drug administration duration [Unknown]
